FAERS Safety Report 5365457-0 (Version None)
Quarter: 2007Q2

REPORT INFORMATION
  Report Type: 
  Country: None (occurrence: None)
  Receive Date: 20070621
  Receipt Date: 20070608
  Transmission Date: 20071010
  Serious: Yes (Life-Threatening)
  Sender: FDA-Public Use
  Company Number: US-MERCK-0302USA02038

PATIENT
  Age: 74 Year
  Sex: Female
  Weight: 55 kg

DRUGS (1)
  1. ZOCOR [Suspect]
     Route: 048
     Dates: end: 20001203

REACTIONS (2)
  - AMYOTROPHIC LATERAL SCLEROSIS [None]
  - ASTHENIA [None]
